FAERS Safety Report 7540230-3 (Version None)
Quarter: 2011Q2

REPORT INFORMATION
  Report Type: 
  Country: None (occurrence: None)
  Receive Date: 20110610
  Receipt Date: 20110606
  Transmission Date: 20111010
  Serious: Yes (Other)
  Sender: FDA-Public Use
  Company Number: AU-JNJFOC-20110602829

PATIENT
  Age: 68 Year
  Sex: Female

DRUGS (5)
  1. IMODIUM [Suspect]
     Route: 048
  2. TEGRETOL [Concomitant]
     Route: 065
  3. MANY OTHER UNSPECIFIED MEDICATIONS [Concomitant]
     Route: 065
  4. IMODIUM [Suspect]
     Indication: DIARRHOEA
     Dosage: 2 CAPLETS INITIALLY AND ANOTHER 1 CAPLET 45 MINUTES LATER
     Route: 048
     Dates: start: 20110604
  5. VALPROATE SODIUM [Concomitant]
     Route: 065

REACTIONS (2)
  - HEADACHE [None]
  - PALPITATIONS [None]
